FAERS Safety Report 16179285 (Version 3)
Quarter: 2019Q2

REPORT INFORMATION
  Report Type: Spontaneous
  Country: FR (occurrence: FR)
  Receive Date: 20190410
  Receipt Date: 20190412
  Transmission Date: 20190711
  Serious: Yes (Death, Other)
  Sender: FDA-Public Use
  Company Number: FR-009507513-1904FRA003810

PATIENT
  Sex: Male

DRUGS (1)
  1. FIDAXOMICIN [Suspect]
     Active Substance: FIDAXOMICIN
     Indication: CLOSTRIDIUM DIFFICILE INFECTION
     Dosage: 1 DF, TWICE DAILY (ONCE IN THE MORNING AND ONCE IN THE EVENING)
     Route: 050
     Dates: start: 20190122, end: 20190130

REACTIONS (4)
  - Lung neoplasm malignant [Fatal]
  - Wrong technique in product usage process [Unknown]
  - Head and neck cancer [Fatal]
  - Incorrect route of product administration [Unknown]
